FAERS Safety Report 12696750 (Version 1)
Quarter: 2016Q3

REPORT INFORMATION
  Report Type: Other
  Country: PT (occurrence: PT)
  Receive Date: 20160830
  Receipt Date: 20160830
  Transmission Date: 20161109
  Serious: Yes (Other)
  Sender: FDA-Public Use
  Company Number: PT-LUPIN PHARMACEUTICALS INC.-2016-02846

PATIENT
  Age: 39 Year
  Sex: Female

DRUGS (9)
  1. PANTOPRAZOLE [Suspect]
     Active Substance: PANTOPRAZOLE SODIUM
     Indication: GASTROOESOPHAGEAL REFLUX DISEASE
     Route: 065
  2. ASPIRIN. [Suspect]
     Active Substance: ASPIRIN
     Indication: INFLUENZA LIKE ILLNESS
     Route: 042
     Dates: start: 2007
  3. RABEPRAZOLE [Suspect]
     Active Substance: RABEPRAZOLE
     Indication: GASTROOESOPHAGEAL REFLUX DISEASE
     Route: 065
  4. LANSOPRAZOLE. [Suspect]
     Active Substance: LANSOPRAZOLE
     Indication: GASTROOESOPHAGEAL REFLUX DISEASE
     Route: 065
  5. IBUPROFEN. [Suspect]
     Active Substance: IBUPROFEN
     Indication: PRODUCT USED FOR UNKNOWN INDICATION
     Route: 048
  6. OMEPRAZOLE. [Suspect]
     Active Substance: OMEPRAZOLE
  7. OMEPRAZOLE. [Suspect]
     Active Substance: OMEPRAZOLE
     Dosage: 40 MG
     Dates: start: 2010
  8. OMEPRAZOLE. [Suspect]
     Active Substance: OMEPRAZOLE
     Indication: GASTROOESOPHAGEAL REFLUX DISEASE
     Route: 042
     Dates: start: 2007
  9. ESOMEPRAZOLE [Suspect]
     Active Substance: ESOMEPRAZOLE
     Indication: GASTROOESOPHAGEAL REFLUX DISEASE
     Route: 065

REACTIONS (3)
  - Dermatitis bullous [Unknown]
  - Angioedema [Unknown]
  - Rash generalised [Unknown]
